FAERS Safety Report 8010728-2 (Version None)
Quarter: 2011Q4

REPORT INFORMATION
  Report Type: 
  Country: None (occurrence: None)
  Receive Date: 20111228
  Receipt Date: 20111219
  Transmission Date: 20120403
  Serious: Yes (Hospitalization)
  Sender: FDA-Public Use
  Company Number: US-JNJFOC-20111209559

PATIENT
  Sex: Male
  Weight: 65 kg

DRUGS (8)
  1. MESALAMINE [Concomitant]
     Route: 048
  2. FOLIC ACID [Concomitant]
  3. PREVACID [Concomitant]
  4. REMICADE [Suspect]
     Indication: INFLAMMATORY BOWEL DISEASE
     Route: 042
     Dates: start: 20090305
  5. HUMIRA [Suspect]
     Indication: INFLAMMATORY BOWEL DISEASE
     Dates: start: 20110303
  6. METHOTREXATE [Suspect]
     Indication: INFLAMMATORY BOWEL DISEASE
  7. CEFDINIR [Suspect]
     Indication: PRODUCT USED FOR UNKNOWN INDICATION
  8. UNKNOWN MEDICATION [Concomitant]
     Indication: SINUSITIS
     Dates: start: 20111201

REACTIONS (1)
  - VIRAL INFECTION [None]
